FAERS Safety Report 9214613 (Version 1)
Quarter: 2013Q2

REPORT INFORMATION
  Report Type: Spontaneous
  Country: DE (occurrence: DE)
  Receive Date: 20130405
  Receipt Date: 20130405
  Transmission Date: 20140414
  Serious: Yes (Other)
  Sender: FDA-Public Use
  Company Number: DE-ELI_LILLY_AND_COMPANY-DE201303009291

PATIENT
  Sex: Female

DRUGS (8)
  1. FORSTEO [Suspect]
     Indication: OSTEOPOROSIS
     Dosage: UNK, QD
     Route: 058
     Dates: start: 20121213
  2. FALITHROM [Concomitant]
     Dosage: UNK, UNKNOWN
     Route: 065
  3. DIGITOXIN [Concomitant]
     Dosage: UNK, UNKNOWN
     Route: 065
  4. MICARDIS [Concomitant]
     Dosage: UNK, UNKNOWN
     Route: 065
  5. TORASEMID [Concomitant]
     Dosage: UNK, UNKNOWN
     Route: 065
  6. HYDROMORFON [Concomitant]
     Dosage: 2 MG, UNKNOWN
     Route: 065
  7. VIGANTOLETTEN [Concomitant]
     Dosage: UNK, UNKNOWN
     Route: 065
  8. AMPHO MORONAL [Concomitant]
     Dosage: UNK, UNKNOWN
     Route: 065

REACTIONS (7)
  - Morbid thoughts [Not Recovered/Not Resolved]
  - Hyporesponsive to stimuli [Not Recovered/Not Resolved]
  - Insomnia [Not Recovered/Not Resolved]
  - Dyspnoea [Not Recovered/Not Resolved]
  - Hypothyroidism [Not Recovered/Not Resolved]
  - Depressed mood [Not Recovered/Not Resolved]
  - Hyperhidrosis [Not Recovered/Not Resolved]
